FAERS Safety Report 8606953-X (Version None)
Quarter: 2012Q3

REPORT INFORMATION
  Report Type: 
  Country: None (occurrence: None)
  Receive Date: 20120820
  Receipt Date: 20120813
  Transmission Date: 20120928
  Serious: No
  Sender: FDA-Public Use
  Company Number: US-PFIZER INC-2012197174

PATIENT
  Sex: Male

DRUGS (1)
  1. SKELAXIN [Suspect]

REACTIONS (2)
  - PAIN [None]
  - HYPOKINESIA [None]
